FAERS Safety Report 6903103-2 (Version None)
Quarter: 2010Q3

REPORT INFORMATION
  Report Type: 
  Country: None (occurrence: None)
  Receive Date: 20100803
  Receipt Date: 20080915
  Transmission Date: 20110219
  Serious: No
  Sender: FDA-Public Use
  Company Number: US-PFIZER INC-2008067208

PATIENT
  Sex: Female
  Weight: 78.93 kg

DRUGS (6)
  1. LYRICA [Suspect]
     Indication: MIGRAINE
     Route: 048
     Dates: start: 20080520
  2. ATENOLOL [Concomitant]
  3. ZYRTEC [Concomitant]
  4. MONTELUKAST SODIUM [Concomitant]
  5. IBUPROFEN [Concomitant]
  6. INDOMETHACIN [Concomitant]
     Dates: end: 20080501

REACTIONS (12)
  - BACK PAIN [None]
  - CLUSTER HEADACHE [None]
  - DEPRESSION [None]
  - DRUG DOSE OMISSION [None]
  - EYE OEDEMA [None]
  - MIGRAINE [None]
  - NAUSEA [None]
  - OEDEMA PERIPHERAL [None]
  - PAINFUL RESPIRATION [None]
  - UNEVALUABLE EVENT [None]
  - VISUAL IMPAIRMENT [None]
  - WEIGHT INCREASED [None]
